FAERS Safety Report 13659221 (Version 1)
Quarter: 2017Q2

REPORT INFORMATION
  Report Type: Spontaneous
  Country: US (occurrence: US)
  Receive Date: 20170616
  Receipt Date: 20170616
  Transmission Date: 20170830
  Serious: Yes (Hospitalization)
  Sender: FDA-Public Use
  Company Number: None

PATIENT
  Age: 59 Year
  Sex: Male
  Weight: 77 kg

DRUGS (9)
  1. GLIPIZIDE. [Concomitant]
     Active Substance: GLIPIZIDE
  2. ASA [Concomitant]
     Active Substance: ASPIRIN
  3. FUROSEMIDE. [Concomitant]
     Active Substance: FUROSEMIDE
  4. ATORVASTATIN [Concomitant]
     Active Substance: ATORVASTATIN
  5. OMNIPAQUE [Suspect]
     Active Substance: IOHEXOL
     Indication: PRODUCT USED FOR UNKNOWN INDICATION
     Dosage: DATES OF USE - ONCE?DOSE AMOUNT - 26,250MG
     Route: 042
  6. BUMEX [Concomitant]
     Active Substance: BUMETANIDE
  7. INSULIN [Concomitant]
     Active Substance: INSULIN NOS
  8. FAMOTIDINE. [Concomitant]
     Active Substance: FAMOTIDINE
  9. HYDRALAZINE [Concomitant]
     Active Substance: HYDRALAZINE HYDROCHLORIDE

REACTIONS (5)
  - Haemodialysis [None]
  - Diabetic nephropathy [None]
  - Renal tubular necrosis [None]
  - Hypoxia [None]
  - Nephropathy toxic [None]

NARRATIVE: CASE EVENT DATE: 20150418
